FAERS Safety Report 5166522-3 (Version None)
Quarter: 2006Q4

REPORT INFORMATION
  Report Type: 
  Country: None (occurrence: None)
  Receive Date: 20061129
  Receipt Date: 20061113
  Transmission Date: 20070319
  Serious: Yes (Other)
  Sender: FDA-Public Use
  Company Number: 2006-301

PATIENT
  Age: 65 Year

DRUGS (14)
  1. CIPROFLOXACIN [Suspect]
     Indication: URINARY TRACT INFECTION
     Dosage: 500 MG (2/DAY)
     Dates: start: 20061024, end: 20061026
  2. AMANTADINE HCL [Concomitant]
  3. AMITRIPTYLINE HCL [Concomitant]
  4. ATENOLOL [Concomitant]
  5. BACLOFEN [Concomitant]
  6. CEPHALEXIN [Concomitant]
  7. DOCUSATE [Concomitant]
  8. EPADERM [Concomitant]
  9. FLUOXETINE [Concomitant]
  10. BOTOX [Concomitant]
  11. GABAPENTIN [Concomitant]
  12. MAXEPA [Concomitant]
  13. OXYBUTYNIN [Concomitant]
  14. ACETAMINOPHEN [Concomitant]

REACTIONS (2)
  - ARTHRALGIA [None]
  - TENDON PAIN [None]
